FAERS Safety Report 6107432-4 (Version None)
Quarter: 2009Q1

REPORT INFORMATION
  Report Type: 
  Country: None (occurrence: None)
  Receive Date: 20090309
  Receipt Date: 20090227
  Transmission Date: 20090719
  Serious: Yes (Hospitalization)
  Sender: FDA-Public Use
  Company Number: FR-PFIZER INC-2009177362

PATIENT
  Sex: Female

DRUGS (2)
  1. SOLU-MEDROL [Suspect]
     Indication: NEUROPATHY PERIPHERAL
     Dosage: UNK
     Route: 042
     Dates: start: 20080615, end: 20080618
  2. CORTANCYL [Suspect]
     Indication: NEPHROPATHY
     Dosage: 27 MG, UNK
     Route: 048
     Dates: start: 20080619

REACTIONS (1)
  - PULMONARY EMBOLISM [None]
